FAERS Safety Report 23487821 (Version 2)
Quarter: 2024Q1

REPORT INFORMATION
  Report Type: Spontaneous
  Country: CA (occurrence: CA)
  Receive Date: 20240206
  Receipt Date: 20240226
  Transmission Date: 20240410
  Serious: Yes (Other)
  Sender: FDA-Public Use
  Company Number: CA-BAXTER-2023BAX020096

PATIENT
  Age: 29 Year
  Sex: Female

DRUGS (31)
  1. ONDANSETRON [Suspect]
     Active Substance: ONDANSETRON
     Indication: Hyperemesis gravidarum
     Dosage: (ONDANSETRON HYDROCHLORIDE) AT AN UNSPECIFIED DOSE AND FREQUENCY (DOSAGE FORM: NOT SPECIFIED)
     Route: 065
  2. FUROSEMIDE [Suspect]
     Active Substance: FUROSEMIDE
     Indication: Pulmonary oedema
     Dosage: 10 MILLIGRAMS (MG) 2 EVERY 1 DAY (DOSAGE FORM: NOT SPECIFIED)
     Route: 042
  3. FUROSEMIDE [Suspect]
     Active Substance: FUROSEMIDE
     Indication: Pulmonary hypertension
     Dosage: 10 MILLIGRAMS (MG), 2 EVERY 1 DAY (DOSAGE FORM: INJECTION)
     Route: 042
  4. FUROSEMIDE [Suspect]
     Active Substance: FUROSEMIDE
     Dosage: AT AN UNSPECIFIED DOSE AND FREQUENCY (DOSAGE FORM: NOT SPECIFIED)
     Route: 065
  5. FUROSEMIDE [Suspect]
     Active Substance: FUROSEMIDE
     Dosage: AT AN UNSPECIFIED DOSE AND FREQUENCY (DOSAGE FORM: INJECTION)
     Route: 065
  6. ASPIRIN [Suspect]
     Active Substance: ASPIRIN
     Indication: Prophylaxis
     Dosage: 162 MILLIGRAMS (MG) 1 EVERY 1 DAY (DOSAGE FORM: NOT SPECIFIED)
     Route: 048
  7. ASPIRIN [Suspect]
     Active Substance: ASPIRIN
     Indication: Pre-eclampsia
     Dosage: 162 MILLIGRAMS (MG) 1 EVERY 1 DAY (DOSAGE FORM: NOT SPECIFIED)
     Route: 048
  8. ASPIRIN [Suspect]
     Active Substance: ASPIRIN
     Indication: Prophylaxis
  9. BETAMETHASONE [Suspect]
     Active Substance: BETAMETHASONE\BETAMETHASONE DIPROPIONATE
     Indication: Pre-eclampsia
     Dosage: UNK
     Route: 065
  10. BETAMETHASONE [Suspect]
     Active Substance: BETAMETHASONE\BETAMETHASONE DIPROPIONATE
     Indication: Maternal therapy to enhance foetal lung maturity
  11. GABAPENTIN [Suspect]
     Active Substance: GABAPENTIN
     Indication: Vomiting
     Dosage: 100 MILLIGRAMS (MG) 1 EVERY 1 DAY (DOSAGE FORM: NOT SPECIFIED)
     Route: 048
  12. GABAPENTIN [Suspect]
     Active Substance: GABAPENTIN
     Indication: Hyperemesis gravidarum
  13. HEPARIN [Suspect]
     Active Substance: HEPARIN SODIUM
     Indication: Thrombosis prophylaxis
     Dosage: 5000 IU (INTERNATIONAL UNIT) 2 EVERY 1 DAY
     Route: 058
  14. HEPARIN [Suspect]
     Active Substance: HEPARIN SODIUM
     Dosage: AT AN UNSPECIFIED DOSE 2 EVERY 1 DAY
     Route: 058
  15. HEPARIN [Suspect]
     Active Substance: HEPARIN SODIUM
     Indication: Thrombosis prophylaxis
     Dosage: 5000 IU (INTERNATIONAL UNIT) 2 EVERY 1 DAY
     Route: 058
  16. INSULIN NOS [Suspect]
     Active Substance: INSULIN NOS
     Indication: Type 1 diabetes mellitus
     Dosage: AT AN UNSPECIFIED DOSE AND FREQUENCY, (DOSAGE FORM: GLOBULES ORAL)
     Route: 065
  17. INSULIN NOS [Suspect]
     Active Substance: INSULIN NOS
     Dosage: AT AN UNSPECIFIED DOSE AND FREQUENCY, (DOSAGE FORM: GLOBULES ORAL)
     Route: 048
  18. LABETALOL [Suspect]
     Active Substance: LABETALOL\LABETALOL HYDROCHLORIDE
     Indication: Blood pressure abnormal
     Dosage: UNK
     Route: 065
  19. LABETALOL [Suspect]
     Active Substance: LABETALOL\LABETALOL HYDROCHLORIDE
     Indication: Pulmonary hypertension
  20. LABETALOL [Suspect]
     Active Substance: LABETALOL\LABETALOL HYDROCHLORIDE
     Indication: Blood pressure management
  21. METOCLOPRAMIDE [Suspect]
     Active Substance: METOCLOPRAMIDE
     Indication: Hyperemesis gravidarum
     Dosage: UNK
     Route: 065
  22. MIRTAZAPINE [Suspect]
     Active Substance: MIRTAZAPINE
     Indication: Vomiting
     Dosage: 15 MILLIGRAMS (MG) 1 EVERY 1 DAY
     Route: 048
  23. MIRTAZAPINE [Suspect]
     Active Substance: MIRTAZAPINE
     Indication: Hyperemesis gravidarum
  24. MIRTAZAPINE [Suspect]
     Active Substance: MIRTAZAPINE
     Indication: Vomiting
     Dosage: (NOVO- MIRTAZAPINE TABLETS) AT AN UNSPECIFIED DOSE AND FREQUENCY
     Route: 065
  25. MIRTAZAPINE [Suspect]
     Active Substance: MIRTAZAPINE
     Indication: Hyperemesis gravidarum
     Dosage: (NOVO- MIRTAZAPINE TABLETS) 15 MILLIGRAMS (MG) 1 EVERY 1 DAY
     Route: 048
  26. NIFEDIPINE [Suspect]
     Active Substance: NIFEDIPINE
     Indication: Blood pressure increased
     Dosage: 30 MILLIGRAMS (MG) 1 EVERY 1 DAY (DOSAGE FORM: NOT SPECIFIED)
     Route: 048
  27. NIFEDIPINE [Suspect]
     Active Substance: NIFEDIPINE
     Indication: Pulmonary hypertension
  28. NIFEDIPINE [Suspect]
     Active Substance: NIFEDIPINE
     Indication: Blood pressure abnormal
     Dosage: 30 MILLIGRAMS (MG) 1 EVERY 1 DAY (DOSAGE FORM: TABLET (EXTENDED-RELEASE)
     Route: 048
  29. NIFEDIPINE [Suspect]
     Active Substance: NIFEDIPINE
     Indication: Pulmonary hypertension
     Dosage: AT AN UNSPECIFIED DOSE AND FREQUENCY, (DOSAGE FORM: TABLET (EXTENDED-RELEASE)
     Route: 065
  30. NIFEDIPINE [Suspect]
     Active Substance: NIFEDIPINE
     Indication: Blood pressure management
  31. OXYTOCIN [Suspect]
     Active Substance: OXYTOCIN
     Indication: Prophylaxis
     Dosage: AT AN UNSPECIFIED DOSE AND FREQUENCY, (DOSAGE FORM: NOT SPECIFIED)
     Route: 065

REACTIONS (7)
  - Drug ineffective [Recovered/Resolved]
  - Live birth [Recovered/Resolved]
  - Premature delivery [Recovered/Resolved]
  - Therapy non-responder [Recovered/Resolved]
  - Product use in unapproved indication [Recovered/Resolved]
  - Off label use [Unknown]
  - Maternal exposure during pregnancy [Recovered/Resolved]
